FAERS Safety Report 9400330 (Version 1)
Quarter: 2013Q3

REPORT INFORMATION
  Report Type: Spontaneous
  Country: US (occurrence: US)
  Receive Date: 20130715
  Receipt Date: 20130715
  Transmission Date: 20140515
  Serious: Yes (Hospitalization)
  Sender: FDA-Public Use
  Company Number: PHHY2013US072553

PATIENT
  Age: 83 Year
  Sex: Male

DRUGS (12)
  1. HEPARIN SODIUM [Suspect]
     Dosage: 5000 U, UNK
  2. HEPARIN SODIUM [Suspect]
     Dosage: 800 U/ HOUR
  3. ACETYLSALICYLIC ACID [Suspect]
     Dosage: 81 MG, UNK
  4. COUMADIN [Concomitant]
  5. FLUTICASONE PROPIONATE [Concomitant]
  6. FUROSEMIDE [Concomitant]
  7. HYDRALAZINE HYDROCHLORIDE [Concomitant]
  8. ISOSORBIDE DINITRATE [Concomitant]
  9. LEVOTHYROXINE SODIUM [Concomitant]
  10. METOPROLOL SUCCINATE [Concomitant]
  11. SIMVASTATIN [Concomitant]
  12. TIOTROPIUM BROMIDE [Concomitant]

REACTIONS (3)
  - Dermatitis bullous [Recovered/Resolved]
  - Skin haemorrhage [Recovered/Resolved]
  - Rash [Recovered/Resolved]
